FAERS Safety Report 22189189 (Version 1)
Quarter: 2023Q2

REPORT INFORMATION
  Report Type: Spontaneous
  Country: CN (occurrence: CN)
  Receive Date: 20230410
  Receipt Date: 20230410
  Transmission Date: 20230722
  Serious: Yes (Hospitalization, Other)
  Sender: FDA-Public Use
  Company Number: CN-MLMSERVICE-20230315-4167558-1

PATIENT

DRUGS (22)
  1. CAPECITABINE [Suspect]
     Active Substance: CAPECITABINE
     Indication: Invasive ductal breast carcinoma
     Dosage: 1.5 G BID PO D1-D14 Q3W
     Route: 048
     Dates: start: 201904, end: 202108
  2. CAPECITABINE [Suspect]
     Active Substance: CAPECITABINE
     Indication: Metastases to lung
  3. CAPECITABINE [Suspect]
     Active Substance: CAPECITABINE
     Indication: Triple negative breast cancer
  4. CAPECITABINE [Suspect]
     Active Substance: CAPECITABINE
     Indication: Metastases to lymph nodes
  5. OXALIPLATIN [Suspect]
     Active Substance: OXALIPLATIN
     Indication: Metastases to lung
     Dosage: 100 MG D1D8 IV GTT Q3W
     Route: 042
     Dates: start: 201806, end: 201903
  6. OXALIPLATIN [Suspect]
     Active Substance: OXALIPLATIN
     Indication: Metastases to lymph nodes
     Dosage: 100MG D1D8 IV GTT Q3W
     Route: 042
     Dates: start: 201612, end: 201805
  7. OXALIPLATIN [Suspect]
     Active Substance: OXALIPLATIN
     Indication: Triple negative breast cancer
  8. OXALIPLATIN [Suspect]
     Active Substance: OXALIPLATIN
     Indication: Invasive ductal breast carcinoma
  9. METHOTREXATE [Suspect]
     Active Substance: METHOTREXATE
     Indication: Invasive ductal breast carcinoma
     Dosage: 30 MG IV GTT Q3W
     Route: 042
     Dates: start: 2004
  10. METHOTREXATE [Suspect]
     Active Substance: METHOTREXATE
     Indication: Triple negative breast cancer
  11. DOCETAXEL [Suspect]
     Active Substance: DOCETAXEL
     Indication: Metastases to lymph nodes
     Dosage: 60 MG D1D8 IV GTT Q3W
     Route: 042
     Dates: start: 201806, end: 201903
  12. DOCETAXEL [Suspect]
     Active Substance: DOCETAXEL
     Indication: Metastases to lung
     Dosage: 60 MG D1D8 IV GTT Q3W
     Route: 042
     Dates: start: 201612, end: 201805
  13. DOCETAXEL [Suspect]
     Active Substance: DOCETAXEL
     Indication: Triple negative breast cancer
  14. DOCETAXEL [Suspect]
     Active Substance: DOCETAXEL
     Indication: Invasive ductal breast carcinoma
  15. FLUOROURACIL [Suspect]
     Active Substance: FLUOROURACIL
     Indication: Triple negative breast cancer
     Dosage: 500 MG IV GTT Q3W
     Route: 042
     Dates: start: 2004
  16. FLUOROURACIL [Suspect]
     Active Substance: FLUOROURACIL
     Indication: Invasive ductal breast carcinoma
  17. BEVACIZUMAB [Suspect]
     Active Substance: BEVACIZUMAB
     Indication: Triple negative breast cancer
     Dosage: 300 MG D1 IV GTT Q3W
     Route: 042
     Dates: start: 201806, end: 201903
  18. BEVACIZUMAB [Suspect]
     Active Substance: BEVACIZUMAB
     Indication: Metastases to lung
  19. BEVACIZUMAB [Suspect]
     Active Substance: BEVACIZUMAB
     Indication: Invasive ductal breast carcinoma
  20. BEVACIZUMAB [Suspect]
     Active Substance: BEVACIZUMAB
     Indication: Metastases to lymph nodes
  21. CYCLOPHOSPHAMIDE [Suspect]
     Active Substance: CYCLOPHOSPHAMIDE
     Indication: Triple negative breast cancer
     Dosage: 600 MG IV GTT Q3W
     Route: 042
  22. CYCLOPHOSPHAMIDE [Suspect]
     Active Substance: CYCLOPHOSPHAMIDE
     Indication: Invasive ductal breast carcinoma

REACTIONS (3)
  - Hormone receptor positive breast cancer [Recovering/Resolving]
  - Metastases to pleura [Recovering/Resolving]
  - HER2 positive breast cancer [Recovering/Resolving]

NARRATIVE: CASE EVENT DATE: 20210401
